FAERS Safety Report 12209595 (Version 1)
Quarter: 2016Q1

REPORT INFORMATION
  Report Type: Report from Study
  Country: CA (occurrence: CA)
  Receive Date: 20160325
  Receipt Date: 20160325
  Transmission Date: 20160526
  Serious: Yes (Other)
  Sender: FDA-Public Use
  Company Number: CA-ROCHE-1565100

PATIENT
  Age: 40 Year
  Sex: Male

DRUGS (6)
  1. ACETAMINOPHEN. [Concomitant]
     Active Substance: ACETAMINOPHEN
     Route: 048
     Dates: start: 20150401
  2. RITUXAN [Suspect]
     Active Substance: RITUXIMAB
     Indication: HASHIMOTO^S ENCEPHALOPATHY
     Route: 042
     Dates: start: 20150401
  3. PREDNISONE. [Concomitant]
     Active Substance: PREDNISONE
  4. METHYLPREDNISOLONE. [Concomitant]
     Active Substance: METHYLPREDNISOLONE
     Route: 042
     Dates: start: 20150401
  5. CETIRIZINE [Concomitant]
     Active Substance: CETIRIZINE HYDROCHLORIDE
     Route: 048
     Dates: start: 20150401
  6. METFORMIN [Concomitant]
     Active Substance: METFORMIN HYDROCHLORIDE

REACTIONS (3)
  - Nasopharyngitis [Not Recovered/Not Resolved]
  - Off label use [Unknown]
  - Pharyngeal mass [Not Recovered/Not Resolved]

NARRATIVE: CASE EVENT DATE: 201504
